FAERS Safety Report 4323875-3 (Version None)
Quarter: 2004Q1

REPORT INFORMATION
  Report Type: 
  Country: None (occurrence: None)
  Receive Date: 20040326
  Receipt Date: 20030826
  Transmission Date: 20041129
  Serious: No
  Sender: FDA-Public Use
  Company Number: US-GLAXOSMITHKLINE-A0423624A

PATIENT
  Age: 47 Year
  Sex: Female

DRUGS (6)
  1. ADVAIR DISKUS 100/50 [Suspect]
     Indication: ASTHMA
     Dosage: 1PUFF TWICE PER DAY
     Route: 055
     Dates: start: 20030401
  2. SINGULAIR [Concomitant]
  3. PROPRANOLOL [Concomitant]
  4. ZYRTEC [Concomitant]
  5. RHINOCORT [Concomitant]
  6. NAPROXEN [Concomitant]

REACTIONS (3)
  - COUGH [None]
  - PHARMACEUTICAL PRODUCT COMPLAINT [None]
  - PRODUCTIVE COUGH [None]
